FAERS Safety Report 5077044-2 (Version None)
Quarter: 2006Q3

REPORT INFORMATION
  Report Type: 
  Country: None (occurrence: None)
  Receive Date: 20060810
  Receipt Date: 20020828
  Transmission Date: 20061208
  Serious: No
  Sender: FDA-Public Use
  Company Number: US-GLAXOSMITHKLINE-A0379405A

PATIENT
  Age: 50 Year
  Sex: Female

DRUGS (3)
  1. PAXIL [Suspect]
     Route: 048
  2. LAMICTAL [Suspect]
     Indication: POST-TRAUMATIC STRESS DISORDER
     Dosage: 50MG PER DAY
     Route: 048
     Dates: start: 20051020
  3. TRAZODONE HCL [Concomitant]

REACTIONS (4)
  - ARTHRALGIA [None]
  - DEPRESSION [None]
  - EUPHORIC MOOD [None]
  - HEADACHE [None]
